FAERS Safety Report 5064689-9 (Version None)
Quarter: 2006Q3

REPORT INFORMATION
  Report Type: 
  Country: None (occurrence: None)
  Receive Date: 20060728
  Receipt Date: 20060516
  Transmission Date: 20061208
  Serious: Yes (Death)
  Sender: FDA-Public Use
  Company Number: FR-GLAXOSMITHKLINE-B0424616A

PATIENT
  Age: 85 Year
  Sex: Female
  Weight: 79 kg

DRUGS (9)
  1. AVANDIA [Suspect]
     Dosage: 2MG TWICE PER DAY
     Route: 048
     Dates: start: 20060301, end: 20060422
  2. GLUCOPHAGE [Concomitant]
     Dosage: 1000MG THREE TIMES PER DAY
     Route: 048
  3. DIAMICRON [Concomitant]
     Dosage: 160MG TWICE PER DAY
     Route: 048
  4. QUINAPRIL HYDROCHLORIDE AND HYDROCHLOROTHIAZDE [Concomitant]
     Dosage: 20MG PER DAY
     Route: 048
  5. LERCAN [Concomitant]
     Dosage: 20MG PER DAY
     Route: 048
  6. LODALES [Concomitant]
     Dosage: 20MG PER DAY
     Route: 048
  7. XALACOM [Concomitant]
     Route: 047
  8. ZOLOFT [Concomitant]
     Route: 065
  9. PSYCHOTHERAPY [Concomitant]

REACTIONS (8)
  - CARDIAC ARREST [None]
  - CARDIAC FAILURE [None]
  - DYSPNOEA [None]
  - HYPERALBUMINAEMIA [None]
  - MALNUTRITION [None]
  - MYOCARDIAL INFARCTION [None]
  - OEDEMA [None]
  - WEIGHT DECREASED [None]
